FAERS Safety Report 5875129-1 (Version None)
Quarter: 2008Q3

REPORT INFORMATION
  Report Type: 
  Country: None (occurrence: None)
  Receive Date: 20080909
  Receipt Date: 20080902
  Transmission Date: 20090109
  Serious: Yes (Other)
  Sender: FDA-Public Use
  Company Number: B0535210A

PATIENT
  Age: 76 Year
  Sex: Male

DRUGS (9)
  1. SERETIDE [Suspect]
     Indication: ASTHMA
     Dosage: 1PUFF TWICE PER DAY
     Route: 055
  2. VENTOLIN [Suspect]
     Indication: ASTHMA
     Dosage: 100MCG AS REQUIRED
     Route: 055
  3. AMLODIPINE [Suspect]
     Dosage: 5MG PER DAY
  4. OMEPRAZOLE [Suspect]
     Dosage: 20MG PER DAY
  5. RAMIPRIL [Suspect]
     Dosage: 2.5MG PER DAY
  6. SIMVASTATIN [Suspect]
     Dosage: 20MG AT NIGHT
  7. TAMSULOSIN HCL [Suspect]
     Dosage: 500MG PER DAY
  8. THEOPHYLLINE [Suspect]
     Dosage: 300MG PER DAY
  9. TIOTROPIUM [Suspect]
     Dosage: 1CAPL PER DAY

REACTIONS (4)
  - ASTHMA [None]
  - DYSPNOEA [None]
  - MEMORY IMPAIRMENT [None]
  - TRANSIENT ISCHAEMIC ATTACK [None]
